FAERS Safety Report 7112690-3 (Version None)
Quarter: 2010Q4

REPORT INFORMATION
  Report Type: 
  Country: None (occurrence: None)
  Receive Date: 20101119
  Receipt Date: 20101108
  Transmission Date: 20110411
  Serious: Yes (Hospitalization)
  Sender: FDA-Public Use
  Company Number: PHHY2010US76159

PATIENT
  Sex: Male

DRUGS (2)
  1. FOCALIN XR [Suspect]
     Indication: ATTENTION DEFICIT/HYPERACTIVITY DISORDER
     Dosage: 15 MG, QD
     Route: 048
  2. DEPAKOTE [Concomitant]
     Dosage: UNK

REACTIONS (4)
  - ACQUIRED EPILEPTIC APHASIA [None]
  - APHASIA [None]
  - GRAND MAL CONVULSION [None]
  - SPEECH DISORDER [None]
